FAERS Safety Report 9999041 (Version 1)
Quarter: 2014Q1

REPORT INFORMATION
  Report Type: Spontaneous
  Country: US (occurrence: None)
  Receive Date: 20140310
  Receipt Date: 20140310
  Transmission Date: 20141002
  Serious: Yes (Hospitalization)
  Sender: FDA-Public Use
  Company Number: QSC-2014-0101

PATIENT
  Age: 73 Year
  Sex: Male

DRUGS (1)
  1. H.P. ACTHAR GEL [Suspect]
     Indication: NEPHROTIC SYNDROME
     Dates: start: 20140128

REACTIONS (2)
  - Syncope [None]
  - Hiccups [None]
